FAERS Safety Report 21994477 (Version 2)
Quarter: 2023Q1

REPORT INFORMATION
  Report Type: Report from Study
  Country: AT (occurrence: AT)
  Receive Date: 20230215
  Receipt Date: 20230327
  Transmission Date: 20230417
  Serious: Yes (Other)
  Sender: FDA-Public Use
  Company Number: AT-GLAXOSMITHKLINE-AT2023GSK021679

PATIENT

DRUGS (5)
  1. BELANTAMAB MAFODOTIN [Suspect]
     Active Substance: BELANTAMAB MAFODOTIN
     Indication: Plasma cell myeloma
     Dosage: 2.5 MG/KG 3 WEEKS
     Route: 042
     Dates: start: 20221025, end: 20221219
  2. TIMOLOL [Concomitant]
     Active Substance: TIMOLOL
     Indication: Prophylaxis
     Dosage: UNK UNK, BID
     Route: 047
     Dates: start: 20221019
  3. HYLO EYE DROPS [Concomitant]
     Indication: Heart rate
     Dosage: 6 X1 DAY,
     Route: 047
     Dates: start: 20230111
  4. SOFTACORT EYE DROPS [Concomitant]
     Indication: Heart rate
     Dosage: UNK, TID
     Route: 047
     Dates: start: 20230111
  5. ACETYLCISTEIN [Concomitant]
     Indication: Heart rate
     Dosage: UNK, TID
     Route: 047
     Dates: start: 20230111

REACTIONS (1)
  - Eye disorder [Not Recovered/Not Resolved]

NARRATIVE: CASE EVENT DATE: 20230111
